FAERS Safety Report 8518293-8 (Version None)
Quarter: 2012Q3

REPORT INFORMATION
  Report Type: 
  Country: None (occurrence: None)
  Receive Date: 20120718
  Receipt Date: 20120118
  Transmission Date: 20120928
  Serious: Yes (Other)
  Sender: FDA-Public Use
  Company Number: US-BRISTOL-MYERS SQUIBB COMPANY-16335564

PATIENT
  Age: 82 Year
  Sex: Female

DRUGS (2)
  1. WARFARIN SODIUM [Suspect]
  2. ERBITUX [Suspect]
     Indication: COLON CANCER
     Dosage: WAS RECIEVED ONCE IN EVERY 1 WEEK

REACTIONS (4)
  - NEOPLASM MALIGNANT [None]
  - ASTHENIA [None]
  - THROMBOSIS [None]
  - NASOPHARYNGITIS [None]
